FAERS Safety Report 10658147 (Version 1)
Quarter: 2014Q4

REPORT INFORMATION
  Report Type: Spontaneous
  Country: US (occurrence: None)
  Receive Date: 20141205
  Receipt Date: 20141205
  Transmission Date: 20150529
  Serious: Yes (Other)
  Sender: FDA-Public Use
  Company Number: USA-2014104447

PATIENT
  Age: 71 Year
  Sex: Female
  Weight: 54.4 kg

DRUGS (12)
  1. POMALYST [Suspect]
     Active Substance: POMALIDOMIDE
     Indication: PLASMA CELL MYELOMA
     Route: 048
     Dates: start: 20140917
  2. FENTANYL(FENTANYL) [Concomitant]
     Active Substance: FENTANYL CITRATE
  3. MORPHINE SULFATE(MORPHINE SULFATE) [Concomitant]
  4. ACYCLOVIR. [Concomitant]
     Active Substance: ACYCLOVIR
  5. CREON(PANCREATIN) [Concomitant]
  6. GABAPENTIN(GABAPENTIN) [Concomitant]
  7. OMEPRAZOLE(OMEPRAZOLE) [Concomitant]
     Active Substance: OMEPRAZOLE
  8. SYNTHROID(LEVOTHYROXINE SODIUM) [Concomitant]
  9. IMODIUM A-D(LOPERAMIDE HYDROCHLORIDE) [Concomitant]
  10. ZOLPIDEM TARTRATE(ZOLPIDEM TARTRATE) [Concomitant]
  11. HYDROCODONE/ACETAMINOPHEN [Concomitant]
     Active Substance: ACETAMINOPHEN\HYDROCODONE
  12. DEXAMETHASONE(DEXAMETHASONE) [Concomitant]

REACTIONS (4)
  - Drug ineffective [None]
  - Plasma cell myeloma [None]
  - Gait disturbance [None]
  - Asthenia [None]

NARRATIVE: CASE EVENT DATE: 2014
